FAERS Safety Report 14189195 (Version 1)
Quarter: 2017Q4

REPORT INFORMATION
  Report Type: Spontaneous
  Country: GB (occurrence: GB)
  Receive Date: 20171115
  Receipt Date: 20171115
  Transmission Date: 20180321
  Serious: Yes (Life-Threatening)
  Sender: FDA-Public Use
  Company Number: GB-ACCORD-061207

PATIENT
  Age: 69 Year
  Sex: Female
  Weight: 96 kg

DRUGS (7)
  1. XELODA [Concomitant]
     Active Substance: CAPECITABINE
  2. CAPECITABINE. [Suspect]
     Active Substance: CAPECITABINE
     Indication: PRODUCT USED FOR UNKNOWN INDICATION
     Dates: start: 20171023, end: 20171023
  3. METOCLOPRAMIDE. [Concomitant]
     Active Substance: METOCLOPRAMIDE
  4. EPIRUBICIN [Suspect]
     Active Substance: EPIRUBICIN
     Indication: NEOADJUVANT THERAPY
     Route: 042
     Dates: start: 20171023, end: 20171023
  5. OXALIPLATIN. [Suspect]
     Active Substance: OXALIPLATIN
     Indication: NEOADJUVANT THERAPY
     Route: 042
     Dates: start: 20171023, end: 20171023
  6. DEXAMETHASONE. [Concomitant]
     Active Substance: DEXAMETHASONE
  7. LOPERAMIDE [Concomitant]
     Active Substance: LOPERAMIDE

REACTIONS (1)
  - Anaphylactic reaction [Recovered/Resolved]

NARRATIVE: CASE EVENT DATE: 20171023
